FAERS Safety Report 5825107-3 (Version None)
Quarter: 2008Q3

REPORT INFORMATION
  Report Type: 
  Country: None (occurrence: None)
  Receive Date: 20080725
  Receipt Date: 20080725
  Transmission Date: 20090109
  Serious: No
  Sender: FDA-Public Use
  Company Number: None

PATIENT
  Age: 88 Year
  Sex: Male
  Weight: 87.72 kg

DRUGS (2)
  1. QUETIAPINE FUMARATE [Suspect]
     Indication: AGITATION
     Dosage: 25 MG AT BEDTIME PO
     Route: 048
     Dates: start: 20080614, end: 20080618
  2. QUETIAPINE FUMARATE [Suspect]
     Indication: DELIRIUM
     Dosage: 25 MG AT BEDTIME PO
     Route: 048
     Dates: start: 20080614, end: 20080618

REACTIONS (1)
  - ELECTROCARDIOGRAM QT PROLONGED [None]
